FAERS Safety Report 8139508-4 (Version None)
Quarter: 2012Q1

REPORT INFORMATION
  Report Type: 
  Country: None (occurrence: None)
  Receive Date: 20120215
  Receipt Date: 20120213
  Transmission Date: 20120608
  Serious: No
  Sender: FDA-Public Use
  Company Number: US-B.I. PHARMACEUTICALS,INC./RIDGEFIELD-2011-BP-07231BP

PATIENT
  Sex: Female

DRUGS (5)
  1. PRADAXA [Suspect]
     Indication: ATRIAL FIBRILLATION
     Dosage: 300 MG
  2. METOCLOPRAMIDE [Concomitant]
  3. HYDROCHLOROTHIAZIDE [Concomitant]
  4. FISH OIL [Concomitant]
  5. CRESTOR [Concomitant]

REACTIONS (3)
  - LIP EXFOLIATION [None]
  - BURNING SENSATION [None]
  - LIP SWELLING [None]
